FAERS Safety Report 5873377-8 (Version None)
Quarter: 2008Q3

REPORT INFORMATION
  Report Type: 
  Country: None (occurrence: None)
  Receive Date: 20080903
  Receipt Date: 20080827
  Transmission Date: 20090109
  Serious: Yes (Other)
  Sender: FDA-Public Use
  Company Number: 2008JP003644

PATIENT
  Age: 74 Year
  Sex: Male
  Weight: 64.2 kg

DRUGS (3)
  1. VESICARE [Suspect]
     Dosage: 5 MG, UID/QD ORAL
     Route: 048
     Dates: start: 20080501, end: 20080709
  2. MERISLON(BETAHISTINE MESILATE) [Suspect]
     Dosage: 12MG, BID, ORAL
     Route: 048
     Dates: end: 20080709
  3. ADALAT CC [Concomitant]

REACTIONS (2)
  - DRUG INTERACTION [None]
  - THROMBOCYTOPENIC PURPURA [None]
